FAERS Safety Report 16052710 (Version 1)
Quarter: 2019Q1

REPORT INFORMATION
  Report Type: Spontaneous
  Country: IT (occurrence: IT)
  Receive Date: 20190308
  Receipt Date: 20190308
  Transmission Date: 20190418
  Serious: Yes (Hospitalization, Other)
  Sender: FDA-Public Use
  Company Number: IT-PFIZER INC-2019097689

PATIENT
  Age: 49 Year
  Sex: Female

DRUGS (6)
  1. DEPAKIN [Concomitant]
     Active Substance: VALPROATE SODIUM
     Dosage: UNK
  2. ZOLOFT [Concomitant]
     Active Substance: SERTRALINE HYDROCHLORIDE
     Dosage: UNK
  3. OPTALIDON [BUTALBITAL;CAFFEINE;PROPYPHENAZONE] [Suspect]
     Active Substance: BUTALBITAL\CAFFEINE\PROPYPHENAZONE
     Indication: DRUG ABUSE
     Dosage: UNK
  4. CONGESCOR [Concomitant]
     Active Substance: BISOPROLOL
     Dosage: 2.5 MG, UNK
  5. TEGRETOL [Concomitant]
     Active Substance: CARBAMAZEPINE
     Dosage: UNK
  6. TAVOR (LORAZEPAM) [Suspect]
     Active Substance: LORAZEPAM
     Indication: DRUG ABUSE
     Dosage: UNK

REACTIONS (4)
  - Gait disturbance [Unknown]
  - Drug abuse [Unknown]
  - Speech disorder [Unknown]
  - Sopor [Unknown]

NARRATIVE: CASE EVENT DATE: 20180703
